FAERS Safety Report 12559743 (Version 1)
Quarter: 2016Q3

REPORT INFORMATION
  Report Type: Spontaneous
  Country: US (occurrence: US)
  Receive Date: 20160715
  Receipt Date: 20160715
  Transmission Date: 20161109
  Serious: No
  Sender: FDA-Public Use
  Company Number: US-JNJFOC-20160617376

PATIENT
  Age: 75 Year
  Sex: Female
  Weight: 59.88 kg

DRUGS (3)
  1. SUDAFED 12 HOUR [Suspect]
     Active Substance: PSEUDOEPHEDRINE HYDROCHLORIDE
     Indication: SINUS CONGESTION
     Dosage: TUESDAY
     Route: 048
     Dates: start: 20160614, end: 20160614
  2. SUDAFED 12 HOUR [Suspect]
     Active Substance: PSEUDOEPHEDRINE HYDROCHLORIDE
     Indication: SINUS CONGESTION
     Dosage: THURSDAY AND FRIDAY
     Route: 048
     Dates: start: 20160616, end: 20160617
  3. SUDAFED 12 HOUR [Suspect]
     Active Substance: PSEUDOEPHEDRINE HYDROCHLORIDE
     Indication: SINUS CONGESTION
     Dosage: WEDNESDAY, 2 CAPLETS AT THE SAME TIME
     Route: 048
     Dates: start: 20160615, end: 20160615

REACTIONS (4)
  - Incorrect dose administered [Recovering/Resolving]
  - Product lot number issue [Unknown]
  - Feeling jittery [Recovering/Resolving]
  - Insomnia [Recovering/Resolving]

NARRATIVE: CASE EVENT DATE: 20160614
